FAERS Safety Report 6879277-9 (Version None)
Quarter: 2010Q3

REPORT INFORMATION
  Report Type: 
  Country: None (occurrence: None)
  Receive Date: 20100728
  Receipt Date: 20100723
  Transmission Date: 20110219
  Serious: Yes (Other)
  Sender: FDA-Public Use
  Company Number: US-ASTRAZENECA-2009UW03706

PATIENT
  Age: 9987 Day
  Sex: Female
  Weight: 72.6 kg

DRUGS (3)
  1. SEROQUEL [Suspect]
     Indication: SLEEP DISORDER
     Dosage: 20 MG, 40 MG
     Route: 048
     Dates: start: 20050722, end: 20060208
  2. SEROQUEL [Suspect]
     Indication: INSOMNIA
     Dosage: 20 MG, 40 MG
     Route: 048
     Dates: start: 20050722, end: 20060208
  3. CELEXA [Concomitant]
     Indication: DEPRESSION
     Dates: start: 19990101

REACTIONS (3)
  - DRUG EXPOSURE DURING PREGNANCY [None]
  - TYPE 2 DIABETES MELLITUS [None]
  - WEIGHT INCREASED [None]
